FAERS Safety Report 17228823 (Version 1)
Quarter: 2020Q1

REPORT INFORMATION
  Report Type: Report from Study
  Country: US (occurrence: US)
  Receive Date: 20200103
  Receipt Date: 20200103
  Transmission Date: 20200409
  Serious: Yes (Other)
  Sender: FDA-Public Use
  Company Number: US-BEH-2019111159

PATIENT
  Age: 57 Year
  Sex: Male
  Weight: 69.39 kg

DRUGS (2)
  1. IDELVION [Suspect]
     Active Substance: COAGULATION FACTOR IX RECOMBINANT HUMAN
     Dosage: UNK
     Route: 042
     Dates: start: 20171128
  2. IDELVION [Suspect]
     Active Substance: COAGULATION FACTOR IX RECOMBINANT HUMAN
     Dosage: UNK
     Route: 042
     Dates: start: 20171128

REACTIONS (3)
  - Arthritis infective [Recovered/Resolved]
  - Hip arthroplasty [Unknown]
  - Joint dislocation [Recovered/Resolved]

NARRATIVE: CASE EVENT DATE: 20180801
